FAERS Safety Report 23752683 (Version 1)
Quarter: 2024Q2

REPORT INFORMATION
  Report Type: Spontaneous
  Country: US (occurrence: US)
  Receive Date: 20240417
  Receipt Date: 20240417
  Transmission Date: 20240715
  Serious: No
  Sender: FDA-Public Use
  Company Number: US-PFIZER INC-202400087338

PATIENT
  Age: 85 Year
  Sex: Female
  Weight: 155 kg

DRUGS (2)
  1. IBRANCE [Suspect]
     Active Substance: PALBOCICLIB
     Indication: Breast cancer
     Dosage: 125 MG, CYCLIC (ONCE PER DAY)
     Route: 048
     Dates: start: 20240407
  2. LETROZOLE [Concomitant]
     Active Substance: LETROZOLE
     Indication: Breast cancer
     Dosage: 2.5 MG, CYCLIC (ONCE PER DAY)
     Route: 048
     Dates: start: 202403

REACTIONS (4)
  - Nasopharyngitis [Recovering/Resolving]
  - Sneezing [Recovering/Resolving]
  - Rhinorrhoea [Recovering/Resolving]
  - Product packaging difficult to open [Unknown]

NARRATIVE: CASE EVENT DATE: 20240409
